FAERS Safety Report 21764289 (Version 2)
Quarter: 2023Q1

REPORT INFORMATION
  Report Type: Spontaneous
  Country: CA (occurrence: CA)
  Receive Date: 20221222
  Receipt Date: 20230202
  Transmission Date: 20230418
  Serious: Yes (Hospitalization, Other)
  Sender: FDA-Public Use
  Company Number: CA-BoehringerIngelheim-2022-BI-208592

PATIENT
  Age: 61 Year
  Sex: Male

DRUGS (16)
  1. JARDIANCE [Suspect]
     Active Substance: EMPAGLIFLOZIN
     Indication: Cardiac failure
     Route: 048
  2. JARDIANCE [Suspect]
     Active Substance: EMPAGLIFLOZIN
     Route: 048
  3. BISOPROLOL [Concomitant]
     Active Substance: BISOPROLOL
     Indication: Product used for unknown indication
  4. SPIRONOLACTONE [Concomitant]
     Active Substance: SPIRONOLACTONE
     Indication: Product used for unknown indication
  5. LASIX [Concomitant]
     Active Substance: FUROSEMIDE
     Indication: Product used for unknown indication
     Dosage: 40-80 MG
  6. ASPIRIN [Concomitant]
     Active Substance: ASPIRIN
     Indication: Product used for unknown indication
  7. CLOPIDOGREL [Concomitant]
     Active Substance: CLOPIDOGREL BISULFATE
     Indication: Product used for unknown indication
  8. ROSUVASTATIN [Concomitant]
     Active Substance: ROSUVASTATIN
     Indication: Product used for unknown indication
     Route: 058
  9. AMIODARONE [Concomitant]
     Active Substance: AMIODARONE
     Indication: Product used for unknown indication
  10. PANTOPRAZOLE [Concomitant]
     Active Substance: PANTOPRAZOLE
     Indication: Product used for unknown indication
  11. CITALOPRAM [Concomitant]
     Active Substance: CITALOPRAM HYDROBROMIDE
     Indication: Product used for unknown indication
  12. LEVOTHYROXINE [Concomitant]
     Active Substance: LEVOTHYROXINE
     Indication: Product used for unknown indication
  13. VITAMIN D [Concomitant]
     Active Substance: VITAMIN D NOS
     Indication: Product used for unknown indication
  14. CLONAZEPAM [Concomitant]
     Active Substance: CLONAZEPAM
     Indication: Product used for unknown indication
     Dosage: 0.25-0.5 DAILY
  15. POLYETHYLENE GLYCOL [Concomitant]
     Active Substance: POLYETHYLENE GLYCOL
     Indication: Product used for unknown indication
     Dosage: AS NECESSARY
  16. BETADERM CRM 0.1% [Concomitant]
     Indication: Product used for unknown indication
     Dosage: 0.1%

REACTIONS (7)
  - Drug eruption [Recovered/Resolved]
  - Superficial inflammatory dermatosis [Recovered/Resolved]
  - Skin abrasion [Recovered/Resolved]
  - Hypotension [Recovered/Resolved]
  - Oedema [Recovered/Resolved]
  - Pain [Recovered/Resolved]
  - Rash [Recovered/Resolved]
